FAERS Safety Report 9692896 (Version 1)
Quarter: 2013Q4

REPORT INFORMATION
  Report Type: Spontaneous
  Country: US (occurrence: None)
  Receive Date: 20131115
  Receipt Date: 20131115
  Transmission Date: 20140711
  Serious: Yes (Other)
  Sender: FDA-Public Use
  Company Number: None

PATIENT
  Age: 86 Year
  Sex: Male
  Weight: 90.72 kg

DRUGS (21)
  1. PIOGLITAZONE HCL [Suspect]
     Indication: DIABETES MELLITUS
     Dosage: 45-MG ?1-PER-DAY?1-TIME DAILY?BY MOUTH
     Route: 048
     Dates: start: 20130610
  2. K-DUR [Concomitant]
  3. PIOGLITAZONE HCL [Concomitant]
  4. CARTIA XT [Concomitant]
  5. ENALAPRIL [Concomitant]
  6. CLONIDINE HCL [Concomitant]
  7. FUROSEMIDE [Concomitant]
  8. DILANTIN [Concomitant]
  9. ZETIA [Concomitant]
  10. CRESTOR [Concomitant]
  11. ONGLYZA [Concomitant]
  12. CARVEDILOL [Concomitant]
  13. SALINE GEL FOR NOSE BLEED [Concomitant]
  14. TRAVETAN [Concomitant]
  15. GLIMEPIMIDE [Concomitant]
  16. B-3 [Concomitant]
  17. ONE A DAY VITAMIN [Concomitant]
  18. B-12 [Concomitant]
  19. ZINK [Concomitant]
  20. CALCIUM [Concomitant]
  21. 1-BABY ASPIRIN [Concomitant]

REACTIONS (2)
  - Product substitution issue [None]
  - Blood glucose increased [None]
